FAERS Safety Report 14146970 (Version 1)
Quarter: 2017Q4

REPORT INFORMATION
  Report Type: Spontaneous
  Country: US (occurrence: US)
  Receive Date: 20171031
  Receipt Date: 20171031
  Transmission Date: 20180321
  Serious: Yes (Other)
  Sender: FDA-Public Use
  Company Number: US-TEVA-820790USA

PATIENT
  Age: 85 Year
  Sex: Male

DRUGS (4)
  1. FOSINOPRIL [Suspect]
     Active Substance: FOSINOPRIL
     Indication: ESSENTIAL HYPERTENSION
     Route: 065
  2. CORDARONE [Suspect]
     Active Substance: AMIODARONE HYDROCHLORIDE
     Indication: ESSENTIAL HYPERTENSION
     Route: 065
  3. AMLODIPINE [Suspect]
     Active Substance: AMLODIPINE BESYLATE
     Indication: ESSENTIAL HYPERTENSION
     Route: 065
  4. LISINOPRIL. [Suspect]
     Active Substance: LISINOPRIL
     Route: 065

REACTIONS (6)
  - Skin exfoliation [Unknown]
  - Blindness unilateral [Unknown]
  - Tinea cruris [Unknown]
  - Intraocular pressure increased [Unknown]
  - Anorectal discomfort [Unknown]
  - Cerebrovascular accident [Unknown]

NARRATIVE: CASE EVENT DATE: 2013
